FAERS Safety Report 7632350-X (Version None)
Quarter: 2011Q3

REPORT INFORMATION
  Report Type: 
  Country: None (occurrence: None)
  Receive Date: 20110725
  Receipt Date: 20100811
  Transmission Date: 20111222
  Serious: Yes (Hospitalization)
  Sender: FDA-Public Use
  Company Number: US-BRISTOL-MYERS SQUIBB COMPANY-15234990

PATIENT
  Age: 80 Year
  Sex: Male
  Weight: 77 kg

DRUGS (5)
  1. PLAVIX [Suspect]
  2. ASPIRIN [Suspect]
  3. BLOOD PRESSURE MEDICATION [Concomitant]
  4. COUMADIN [Suspect]
  5. CHOLESTEROL MEDICATION [Concomitant]

REACTIONS (1)
  - EPISTAXIS [None]
